FAERS Safety Report 5115840-3 (Version None)
Quarter: 2006Q3

REPORT INFORMATION
  Report Type: 
  Country: None (occurrence: None)
  Receive Date: 20060927
  Receipt Date: 20060913
  Transmission Date: 20061208
  Serious: Yes (Other)
  Sender: FDA-Public Use
  Company Number: PHEH2006US11700

PATIENT
  Age: 77 Year
  Sex: Female

DRUGS (1)
  1. ZELNORM [Suspect]
     Indication: CONSTIPATION
     Dosage: 6 MG, BID
     Route: 048
     Dates: start: 20030101, end: 20060601

REACTIONS (5)
  - CONSTIPATION [None]
  - DISEASE RECURRENCE [None]
  - FREQUENT BOWEL MOVEMENTS [None]
  - HAEMORRHOID OPERATION [None]
  - HAEMORRHOIDS [None]
